FAERS Safety Report 14290415 (Version 1)
Quarter: 2017Q4

REPORT INFORMATION
  Report Type: Spontaneous
  Country: ES (occurrence: ES)
  Receive Date: 20171215
  Receipt Date: 20171215
  Transmission Date: 20180321
  Serious: Yes (Other)
  Sender: FDA-Public Use
  Company Number: ES-JNJFOC-20171211427

PATIENT
  Age: 3 Year
  Sex: Male

DRUGS (6)
  1. HYDROCORTISONE. [Concomitant]
     Active Substance: HYDROCORTISONE
     Route: 048
     Dates: start: 20170808
  2. DEXAMETHASONE. [Suspect]
     Active Substance: DEXAMETHASONE
     Indication: ACUTE LYMPHOCYTIC LEUKAEMIA
     Route: 042
     Dates: start: 20170718, end: 20170806
  3. ZOVIRAX [Concomitant]
     Active Substance: ACYCLOVIR
     Indication: OPPORTUNISTIC INFECTION PROPHYLAXIS
     Dosage: 400 MG/ 5 ML
     Route: 048
     Dates: start: 20170201
  4. VINCRISTINA SULFATO [Suspect]
     Active Substance: VINCRISTINE SULFATE
     Indication: ACUTE LYMPHOCYTIC LEUKAEMIA
     Route: 042
     Dates: start: 20170808, end: 20170808
  5. DOXORUBICIN HYDROCHLORIDE. [Suspect]
     Active Substance: DOXORUBICIN HYDROCHLORIDE
     Indication: ACUTE LYMPHOCYTIC LEUKAEMIA
     Route: 042
     Dates: start: 20170808, end: 20170808
  6. SEPTRIN [Concomitant]
     Active Substance: SULFAMETHOXAZOLE\TRIMETHOPRIM
     Indication: OPPORTUNISTIC INFECTION PROPHYLAXIS
     Dosage: 8 MG/40 MG/ML
     Route: 048
     Dates: start: 20170201

REACTIONS (4)
  - Stomatitis [Recovered/Resolved]
  - Off label use [Unknown]
  - Anal inflammation [Recovered/Resolved]
  - Product use in unapproved indication [Unknown]

NARRATIVE: CASE EVENT DATE: 20170816
